FAERS Safety Report 9722151 (Version 5)
Quarter: 2013Q4

REPORT INFORMATION
  Report Type: Spontaneous
  Country: GB (occurrence: GB)
  Receive Date: 20131202
  Receipt Date: 20131231
  Transmission Date: 20140711
  Serious: Yes (Hospitalization, Other)
  Sender: FDA-Public Use
  Company Number: GB-AMGEN-GBRSP2013083804

PATIENT
  Age: 78 Year
  Sex: Female
  Weight: 82 kg

DRUGS (7)
  1. ARANESP [Suspect]
     Indication: ANAEMIA
     Dosage: 180, QWK
     Route: 065
     Dates: start: 20090605
  2. ALFACALCIDOL [Concomitant]
     Indication: HYPERPARATHYROIDISM
     Dosage: 0.5 MUG, QOD
     Route: 048
     Dates: start: 20130410
  3. AMITRIPTYLINE [Concomitant]
     Dosage: 20 MG, QD
     Route: 048
     Dates: start: 20130627
  4. ATORVASTATIN [Concomitant]
     Dosage: 20 MG, QD
     Route: 048
     Dates: start: 20050108
  5. CALCICHEW [Concomitant]
     Dosage: UNK UNK, TID
     Route: 048
     Dates: start: 20131105
  6. SENNA                              /00142201/ [Concomitant]
     Dosage: UNK UNK, QD
     Route: 048
     Dates: start: 20130124
  7. TINZAPARIN [Concomitant]
     Dosage: 2500 UNIT, Q3WK
     Route: 042
     Dates: start: 20130124

REACTIONS (13)
  - Drug ineffective [Not Recovered/Not Resolved]
  - Haemoglobin decreased [Not Recovered/Not Resolved]
  - Anaemia [Unknown]
  - Duodenitis [Unknown]
  - Gastritis [Unknown]
  - Glomerulonephritis chronic [Unknown]
  - Secondary hypertension [Unknown]
  - Lethargy [Unknown]
  - Pallor [Unknown]
  - Syncope [Unknown]
  - Asthenia [Unknown]
  - Fatigue [Unknown]
  - Dyspnoea [Unknown]
